FAERS Safety Report 22263561 (Version 1)
Quarter: 2023Q2

REPORT INFORMATION
  Report Type: Spontaneous
  Country: US (occurrence: US)
  Receive Date: 20230428
  Receipt Date: 20230428
  Transmission Date: 20230721
  Serious: No
  Sender: FDA-Public Use
  Company Number: US-BRISTOL-MYERS SQUIBB COMPANY-2023-057152

PATIENT
  Age: 85 Year
  Sex: Male
  Weight: 95.25 kg

DRUGS (2)
  1. ONUREG [Suspect]
     Active Substance: AZACITIDINE
     Indication: Acute myeloid leukaemia
     Dosage: FOR (14) DAYS AND OFF (14) DAYS
     Route: 048
  2. DIOVAN [Concomitant]
     Active Substance: VALSARTAN
     Indication: Product used for unknown indication

REACTIONS (1)
  - Arthralgia [Unknown]
